FAERS Safety Report 24428149 (Version 4)
Quarter: 2025Q1

REPORT INFORMATION
  Report Type: Spontaneous
  Country: US (occurrence: US)
  Receive Date: 20241011
  Receipt Date: 20250108
  Transmission Date: 20250409
  Serious: Yes (Other)
  Sender: PFIZER
  Company Number: US-PFIZER INC-PV202400131466

PATIENT
  Age: 66 Year
  Sex: Female

DRUGS (3)
  1. TIKOSYN [Suspect]
     Active Substance: DOFETILIDE
  2. TIKOSYN [Suspect]
     Active Substance: DOFETILIDE
  3. DOFETILIDE [Suspect]
     Active Substance: DOFETILIDE

REACTIONS (3)
  - Brain injury [Unknown]
  - Cardiac failure chronic [Unknown]
  - Product prescribing error [Unknown]
